FAERS Safety Report 19344804 (Version 3)
Quarter: 2021Q4

REPORT INFORMATION
  Report Type: Spontaneous
  Country: US (occurrence: US)
  Receive Date: 20210530
  Receipt Date: 20211228
  Transmission Date: 20220304
  Serious: Yes (Hospitalization, Other)
  Sender: FDA-Public Use
  Company Number: US-PURDUE-USA-2020-0205832

PATIENT
  Sex: Female

DRUGS (7)
  1. OXYCONTIN [Suspect]
     Active Substance: OXYCODONE HYDROCHLORIDE
     Indication: Analgesic therapy
     Dosage: 60 MG, UNK
     Route: 048
  2. OXYCONTIN [Suspect]
     Active Substance: OXYCODONE HYDROCHLORIDE
     Dosage: 80 MG, UNK
     Route: 048
  3. OXYCONTIN [Suspect]
     Active Substance: OXYCODONE HYDROCHLORIDE
     Dosage: 40 MG, UNK
     Route: 048
  4. HYDROCODONE BITARTRATE [Suspect]
     Active Substance: HYDROCODONE BITARTRATE
     Indication: Analgesic therapy
     Dosage: UNKNOWN DOSAGE
     Route: 048
  5. ACETAMINOPHEN\OXYCODONE HYDROCHLORIDE [Suspect]
     Active Substance: ACETAMINOPHEN\OXYCODONE HYDROCHLORIDE
     Indication: Product used for unknown indication
     Dosage: UNKNOWN
     Route: 048
  6. HYDROCODONE BITARTRATE AND ACETAMINOPHEN [Suspect]
     Active Substance: ACETAMINOPHEN\HYDROCODONE BITARTRATE
     Indication: Product used for unknown indication
     Dosage: UNKNOWN
     Route: 048
  7. HEROIN [Suspect]
     Active Substance: DIAMORPHINE
     Indication: Product used for unknown indication
     Dosage: UNKNOWN DOSAGE
     Route: 065

REACTIONS (9)
  - Overdose [Unknown]
  - Drug dependence [Unknown]
  - Drug abuse [Unknown]
  - Illness [Unknown]
  - Vomiting [Unknown]
  - Tremor [Unknown]
  - Emotional distress [Not Recovered/Not Resolved]
  - Crying [Unknown]
  - Depersonalisation/derealisation disorder [Unknown]
